FAERS Safety Report 8424164-8 (Version None)
Quarter: 2012Q2

REPORT INFORMATION
  Report Type: 
  Country: None (occurrence: None)
  Receive Date: 20120608
  Receipt Date: 20120302
  Transmission Date: 20120825
  Serious: No
  Sender: FDA-Public Use
  Company Number: US-ASTRAZENECA-2012SE15098

PATIENT
  Sex: Female

DRUGS (3)
  1. PULMICORT [Suspect]
     Route: 055
  2. RHINOCORT [Suspect]
     Route: 045
  3. NEXIUM [Suspect]
     Route: 048

REACTIONS (2)
  - WRONG TECHNIQUE IN DRUG USAGE PROCESS [None]
  - DRUG DEPENDENCE [None]
